FAERS Safety Report 9170840 (Version 1)
Quarter: 2013Q1

REPORT INFORMATION
  Report Type: Spontaneous
  Country: AT (occurrence: None)
  Receive Date: 20130312
  Receipt Date: 20130312
  Transmission Date: 20140127
  Serious: No
  Sender: FDA-Public Use
  Company Number: FK201300739

PATIENT
  Age: 16 Month
  Sex: Male

DRUGS (3)
  1. CYTARABINE (CYTARABINE) [Suspect]
  2. ETOPOSIDE [Suspect]
  3. DAUNORUBICIN [Suspect]

REACTIONS (1)
  - Tumour lysis syndrome [None]
